FAERS Safety Report 21075277 (Version 1)
Quarter: 2022Q3

REPORT INFORMATION
  Report Type: Spontaneous
  Country: US (occurrence: None)
  Receive Date: 20220712
  Receipt Date: 20220712
  Transmission Date: 20221026
  Serious: No
  Sender: FDA-Public Use
  Company Number: None

PATIENT
  Age: 72 Year
  Sex: Female

DRUGS (1)
  1. ERLOTINIB [Suspect]
     Active Substance: ERLOTINIB
     Dosage: FREQUENCY : DAILY;?
     Route: 048
     Dates: start: 202105

REACTIONS (3)
  - Cerebrovascular accident [None]
  - Paraneoplastic syndrome [None]
  - Toxicity to various agents [None]

NARRATIVE: CASE EVENT DATE: 20220615
